FAERS Safety Report 24064540 (Version 4)
Quarter: 2025Q3

REPORT INFORMATION
  Report Type: Spontaneous
  Country: US (occurrence: US)
  Receive Date: 20240709
  Receipt Date: 20250902
  Transmission Date: 20251020
  Serious: No
  Sender: SANOFI AVENTIS
  Company Number: US-SA-SAC20240702000764

PATIENT
  Age: 13 Year
  Sex: Male

DRUGS (14)
  1. DUPIXENT [Suspect]
     Active Substance: DUPILUMAB
     Indication: Eosinophilic oesophagitis
     Dosage: 300 MG, QOW
     Route: 058
     Dates: start: 20240320
  2. DUPILUMAB [Suspect]
     Active Substance: DUPILUMAB
     Indication: Eosinophilic oesophagitis
     Dosage: 300 MG, QOW
     Route: 058
  3. GARDASIL 9 [Concomitant]
     Active Substance: HUMAN PAPILLOMAVIRUS TYPE 11 L1 CAPSID PROTEIN ANTIGEN\HUMAN PAPILLOMAVIRUS TYPE 16 L1 CAPSID PROTEI
  4. GENOTROPIN [Concomitant]
     Active Substance: SOMATROPIN
  5. IBUPROFEN [Concomitant]
     Active Substance: IBUPROFEN
  6. IPRATROPIUM [Concomitant]
     Active Substance: IPRATROPIUM
  7. LANSOPRAZOLE [Concomitant]
     Active Substance: LANSOPRAZOLE
  8. VITAMIN D2 [Concomitant]
     Active Substance: ERGOCALCIFEROL
  9. ZYRTEC [Concomitant]
     Active Substance: CETIRIZINE HYDROCHLORIDE
  10. MAGNESIUM GLUCONATE [Concomitant]
     Active Substance: MAGNESIUM GLUCONATE
  11. METHYLPHENIDATE [Concomitant]
     Active Substance: METHYLPHENIDATE
  12. VITAMINS NOS [Concomitant]
     Active Substance: VITAMINS
  13. CYPROHEPTADINE HYDROCHLORIDE [Concomitant]
     Active Substance: CYPROHEPTADINE HYDROCHLORIDE
  14. PROBIOTICS NOS [Concomitant]
     Active Substance: PROBIOTICS NOS

REACTIONS (9)
  - Decreased appetite [Unknown]
  - Dysphagia [Recovered/Resolved]
  - Illness [Not Recovered/Not Resolved]
  - Depression [Not Recovered/Not Resolved]
  - Cough [Unknown]
  - Infection [Unknown]
  - Eosinophilic oesophagitis [Not Recovered/Not Resolved]
  - Drug ineffective [Unknown]
  - Product dose omission in error [Unknown]

NARRATIVE: CASE EVENT DATE: 20240101
